FAERS Safety Report 18356342 (Version 1)
Quarter: 2020Q4

REPORT INFORMATION
  Report Type: Report from Study
  Country: DO (occurrence: DO)
  Receive Date: 20201007
  Receipt Date: 20201007
  Transmission Date: 20210114
  Serious: Yes (Other)
  Sender: FDA-Public Use
  Company Number: DO-JNJFOC-20200950290

PATIENT
  Age: 32 Year
  Sex: Female
  Weight: 100 kg

DRUGS (1)
  1. STELARA [Suspect]
     Active Substance: USTEKINUMAB
     Indication: CROHN^S DISEASE
     Route: 058
     Dates: start: 20190401

REACTIONS (2)
  - Rhinitis [Unknown]
  - Arthralgia [Unknown]

NARRATIVE: CASE EVENT DATE: 20200924
